FAERS Safety Report 20520382 (Version 1)
Quarter: 2022Q1

REPORT INFORMATION
  Report Type: Spontaneous
  Country: US (occurrence: US)
  Receive Date: 20220225
  Receipt Date: 20220225
  Transmission Date: 20220423
  Serious: Yes (Other)
  Sender: FDA-Public Use
  Company Number: US-TEVA-2022-US-2009769

PATIENT
  Age: 72 Year
  Sex: Male

DRUGS (3)
  1. DANAZOL [Suspect]
     Active Substance: DANAZOL
     Indication: Polycythaemia vera
     Route: 065
     Dates: start: 20211113
  2. PEGASYS [Concomitant]
     Active Substance: PEGINTERFERON ALFA-2A
  3. RUXOLITINIB [Concomitant]
     Active Substance: RUXOLITINIB

REACTIONS (3)
  - Myelofibrosis [Unknown]
  - Red blood cell count increased [Unknown]
  - Product use in unapproved indication [Unknown]

NARRATIVE: CASE EVENT DATE: 20211113
